FAERS Safety Report 24042034 (Version 1)
Quarter: 2024Q3

REPORT INFORMATION
  Report Type: Spontaneous
  Country: US (occurrence: None)
  Receive Date: 20240701
  Receipt Date: 20240701
  Transmission Date: 20241017
  Serious: No
  Sender: Public
  Company Number: None

PATIENT
  Age: 65 Year
  Sex: Female
  Weight: 48.15 kg

DRUGS (1)
  1. CLINDAMYCIN HYDROCHLORIDE [Suspect]
     Active Substance: CLINDAMYCIN HYDROCHLORIDE
     Indication: Dental operation
     Dosage: 1  CAPSULE EVERY 6 HOURS ORAL
     Route: 048
     Dates: start: 20240627

REACTIONS (1)
  - Insomnia [None]

NARRATIVE: CASE EVENT DATE: 20240627
